FAERS Safety Report 23214812 (Version 1)
Quarter: 2023Q4

REPORT INFORMATION
  Report Type: Spontaneous
  Country: FR (occurrence: FR)
  Receive Date: 20231121
  Receipt Date: 20231121
  Transmission Date: 20240109
  Serious: Yes (Hospitalization)
  Sender: FDA-Public Use
  Company Number: None

PATIENT
  Age: 54 Year
  Sex: Male
  Weight: 72 kg

DRUGS (9)
  1. LENALIDOMIDE [Suspect]
     Active Substance: LENALIDOMIDE
     Indication: Plasma cell myeloma
     Dosage: UNIT DOSE:525MG,FREQUENCY TIME:28 DAYS,DURATION:129 DAYS
     Route: 065
     Dates: start: 20230605, end: 20231012
  2. RAMIPRIL [Suspect]
     Active Substance: RAMIPRIL
     Indication: Hypertension
     Dosage: THERAPY START DATE: ASKU, UNIT DOSE:2.5 MG, THERAPY START DATE: ASKU, FREQUENCY TIME:1 DAYS
     Route: 065
     Dates: end: 20231012
  3. VALACYCLOVIR HYDROCHLORIDE [Suspect]
     Active Substance: VALACYCLOVIR HYDROCHLORIDE
     Indication: Opportunistic infection prophylaxis
     Dosage: THERAPY END DATE: NASK, UNIT DOSE:1 GRAM, FREQUENCY TIME:1 DAYS
     Route: 065
     Dates: start: 20230605
  4. DEXAMETHASONE [Suspect]
     Active Substance: DEXAMETHASONE
     Indication: Plasma cell myeloma
     Dosage: DOSE:40MG,FREQUENCY TIME:1 WEEK,DURATION:126 DAYS
     Dates: start: 20230605, end: 20231009
  5. LEUCOVORIN CALCIUM [Suspect]
     Active Substance: LEUCOVORIN CALCIUM
     Indication: Prophylaxis
     Dosage: THERAPY END DATE; NASK, UNIT DOSE:1 DF, FREQUENCY TIME:1 WEEKS
     Dates: start: 20230605
  6. DARATUMUMAB [Suspect]
     Active Substance: DARATUMUMAB
     Indication: Plasma cell myeloma
     Dosage: UNIT DOSEL1800MG,FREQUENCY TIME:1 CYCLICAL, DURATION: 112 DAYS
     Dates: start: 20230605, end: 20230925
  7. BACTRIM [Suspect]
     Active Substance: SULFAMETHOXAZOLE\TRIMETHOPRIM
     Indication: Opportunistic infection prophylaxis
     Dosage: UNIT DOSE:3 DF, FREQUENCY TIME:1 WEEK, THERAPY END DATE: NASK
     Dates: start: 20230605
  8. AREDIA [Concomitant]
     Active Substance: PAMIDRONATE DISODIUM
     Indication: Product used for unknown indication
     Dosage: DURATION:1 DAYS
     Dates: start: 20230828, end: 20230828
  9. ELIQUIS [Concomitant]
     Active Substance: APIXABAN
     Indication: Product used for unknown indication
     Dosage: UNIT DOSE:5MG,FREQUENCY TIME:1 DAYS
     Dates: start: 20230605

REACTIONS (1)
  - Ischaemic stroke [Not Recovered/Not Resolved]

NARRATIVE: CASE EVENT DATE: 20231011
